FAERS Safety Report 22248558 (Version 2)
Quarter: 2023Q2

REPORT INFORMATION
  Report Type: Spontaneous
  Country: US (occurrence: US)
  Receive Date: 20230425
  Receipt Date: 20230512
  Transmission Date: 20230721
  Serious: Yes (Other)
  Sender: FDA-Public Use
  Company Number: US-002147023-NVSC2023US093223

PATIENT
  Age: 57 Year
  Sex: Male
  Weight: 87.8 kg

DRUGS (6)
  1. CLOFAZIMINE [Suspect]
     Active Substance: CLOFAZIMINE
     Indication: Mycobacterium avium complex infection
     Dosage: 100 MG, QD
     Route: 048
     Dates: start: 20221214, end: 20230115
  2. RIFAMPIN [Concomitant]
     Active Substance: RIFAMPIN
     Indication: Mycobacterium avium complex infection
     Dosage: 600 MG
     Route: 048
     Dates: start: 20200131
  3. ETHAMBUTOL [Concomitant]
     Active Substance: ETHAMBUTOL HYDROCHLORIDE
     Indication: Mycobacterium avium complex infection
     Dosage: 1200 MG
     Route: 048
     Dates: start: 20200131
  4. ALBUTEROL [Concomitant]
     Active Substance: ALBUTEROL
     Indication: Mycobacterium avium complex infection
     Dosage: 90 UG, Q6H PRN
     Dates: start: 20211123
  5. AZITHROMYCIN [Concomitant]
     Active Substance: AZITHROMYCIN
     Indication: Mycobacterium avium complex infection
     Dosage: 250 MG
     Route: 048
     Dates: start: 20200131
  6. CETIRIZINE [Concomitant]
     Active Substance: CETIRIZINE HYDROCHLORIDE
     Indication: Rhinitis allergic
     Dosage: 10 MG
     Route: 048
     Dates: start: 20220916

REACTIONS (3)
  - Hallucination [Unknown]
  - Anxiety [Recovered/Resolved]
  - Skin discolouration [Recovered/Resolved with Sequelae]

NARRATIVE: CASE EVENT DATE: 20230115
